FAERS Safety Report 6522253-6 (Version None)
Quarter: 2009Q4

REPORT INFORMATION
  Report Type: 
  Country: None (occurrence: None)
  Receive Date: 20091229
  Receipt Date: 20091229
  Transmission Date: 20100525
  Serious: Yes (Hospitalization)
  Sender: FDA-Public Use
  Company Number: None

PATIENT
  Age: 83 Year
  Sex: Male
  Weight: 93.9 kg

DRUGS (12)
  1. PHENYTOIN [Suspect]
     Indication: CONVULSION
     Dosage: 200 MG PO Q12H (HOMEMED)
     Route: 048
  2. ASPIRIN [Concomitant]
  3. ASTELIN [Concomitant]
  4. BACTRIM [Concomitant]
  5. DOCUSATE [Concomitant]
  6. FLEXERIL [Concomitant]
  7. FEXOFENADINE [Concomitant]
  8. TAMSULOSIN HCL [Concomitant]
  9. FUROSEMIDE [Concomitant]
  10. ATORVASTATIN CALCIUM [Concomitant]
  11. METOPROLOL TARTRATE [Concomitant]
  12. APAP TAB [Concomitant]

REACTIONS (8)
  - BLOOD ALBUMIN DECREASED [None]
  - BLOOD CREATININE INCREASED [None]
  - CONVULSION [None]
  - CREATININE RENAL CLEARANCE DECREASED [None]
  - DIARRHOEA [None]
  - DISORIENTATION [None]
  - DYSARTHRIA [None]
  - MENTAL STATUS CHANGES [None]
